FAERS Safety Report 17523044 (Version 1)
Quarter: 2020Q1

REPORT INFORMATION
  Report Type: Spontaneous
  Country: ES (occurrence: ES)
  Receive Date: 20200311
  Receipt Date: 20200311
  Transmission Date: 20200409
  Serious: Yes (Life-Threatening, Hospitalization, Other)
  Sender: FDA-Public Use
  Company Number: ES-AUROBINDO-AUR-APL-2020-011722

PATIENT
  Age: 88 Year
  Sex: Female

DRUGS (1)
  1. ERTAPENEM. [Suspect]
     Active Substance: ERTAPENEM SODIUM
     Indication: GENITOURINARY TRACT INFECTION
     Dosage: 1 GRAM, ONCE A DAY (1-0-0)
     Route: 042
     Dates: start: 20200221, end: 20200223

REACTIONS (1)
  - Generalised tonic-clonic seizure [Recovered/Resolved]

NARRATIVE: CASE EVENT DATE: 20200223
